FAERS Safety Report 5919800-1 (Version None)
Quarter: 2008Q4

REPORT INFORMATION
  Report Type: 
  Country: None (occurrence: None)
  Receive Date: 20081010
  Receipt Date: 20080925
  Transmission Date: 20090506
  Serious: Yes (Hospitalization)
  Sender: FDA-Public Use
  Company Number: DSJ-2008-02862

PATIENT
  Age: 79 Year
  Sex: Male
  Weight: 56.5 kg

DRUGS (11)
  1. OLMESARTAN MEDOXOMIL [Suspect]
     Indication: ESSENTIAL HYPERTENSION
     Dosage: 20 MG (20 MG, 1 IN 1 D) ,PER ORAL; 40 MG (2 IN 1 D) ,PER ORAL
     Route: 048
     Dates: start: 20051027, end: 20070111
  2. OLMESARTAN MEDOXOMIL [Suspect]
     Indication: ESSENTIAL HYPERTENSION
     Dosage: 20 MG (20 MG, 1 IN 1 D) ,PER ORAL; 40 MG (2 IN 1 D) ,PER ORAL
     Route: 048
     Dates: start: 20070112, end: 20080215
  3. TANATRIL (IMIDAPRIL HYDROCHLORIDE) (IMIDAPRIL HYDROCHLORIDE) [Suspect]
     Dosage: 5 MG (5 MG, 1 IN 1 D) ,PER ORAL; 10 MG (2 IN 1 D) ,PER ORAL
     Route: 048
     Dates: start: 20051019, end: 20051213
  4. TANATRIL (IMIDAPRIL HYDROCHLORIDE) (IMIDAPRIL HYDROCHLORIDE) [Suspect]
     Dosage: 5 MG (5 MG, 1 IN 1 D) ,PER ORAL; 10 MG (2 IN 1 D) ,PER ORAL
     Route: 048
     Dates: start: 20051214, end: 20060512
  5. TANATRIL (IMIDAPRIL HYDROCHLORIDE) (IMIDAPRIL HYDROCHLORIDE) [Suspect]
     Dosage: 5 MG (5 MG, 1 IN 1 D) ,PER ORAL; 10 MG (2 IN 1 D) ,PER ORAL
     Route: 048
     Dates: start: 20060513, end: 20060811
  6. TANATRIL (IMIDAPRIL HYDROCHLORIDE) (IMIDAPRIL HYDROCHLORIDE) [Suspect]
     Dosage: 5 MG (5 MG, 1 IN 1 D) ,PER ORAL; 10 MG (2 IN 1 D) ,PER ORAL
     Route: 048
     Dates: start: 20060812
  7. NU-LOTAN (LOSARTAN POTASSIUM) (LOSARTAN POTASSIUM) [Concomitant]
  8. FLUITRAN (TRICHLORMETHIAZIDE) (TRICHLORMETHIAZIDE) [Concomitant]
  9. PARAMIDIN (BUCOLOME) (BUCOLOME) [Concomitant]
  10. PLETAAL (CILOSTAZOL) (CILOSTAZOL) [Concomitant]
  11. WARFARIN SODIUM [Concomitant]

REACTIONS (8)
  - ARTERIOSCLEROSIS OBLITERANS [None]
  - BLOOD PRESSURE DECREASED [None]
  - CONDITION AGGRAVATED [None]
  - HYPERTENSION [None]
  - INTERMITTENT CLAUDICATION [None]
  - PAIN IN EXTREMITY [None]
  - RENAL FAILURE CHRONIC [None]
  - SKIN DISCOLOURATION [None]
